FAERS Safety Report 17871475 (Version 6)
Quarter: 2020Q4

REPORT INFORMATION
  Report Type: Spontaneous
  Country: ES (occurrence: ES)
  Receive Date: 20200608
  Receipt Date: 20201008
  Transmission Date: 20210113
  Serious: Yes (Other)
  Sender: FDA-Public Use
  Company Number: ES-BRISTOL-MYERS SQUIBB COMPANY-BMS-2020-043004

PATIENT
  Age: 46 Year
  Sex: Male

DRUGS (15)
  1. FENTANYL. [Interacting]
     Active Substance: FENTANYL
     Indication: PRODUCT USED FOR UNKNOWN INDICATION
     Dosage: UNK
     Route: 065
  2. PREGABALINA [Concomitant]
     Active Substance: PREGABALIN
     Indication: CHEST PAIN
     Dosage: 450 MILLIGRAM, QD
     Route: 065
  3. METFORMINA [METFORMIN] [Concomitant]
     Active Substance: METFORMIN HYDROCHLORIDE
     Indication: TYPE 2 DIABETES MELLITUS
     Dosage: 1700 MILLIGRAM, QD
     Route: 065
  4. BUPRENORPHINE. [Interacting]
     Active Substance: BUPRENORPHINE
     Indication: PRODUCT USED FOR UNKNOWN INDICATION
     Dosage: UNK
     Route: 065
  5. AMITRIPTILINA [AMITRIPTYLINE] [Concomitant]
     Active Substance: AMITRIPTYLINE HYDROCHLORIDE
     Indication: DEPRESSION
     Dosage: 25 MILLIGRAM, QD
     Route: 065
  6. BUPRENORFINA [BUPRENORPHINE] [Concomitant]
     Active Substance: BUPRENORPHINE
     Indication: CHEST PAIN
     Dosage: 52.5 MCG     1/72H
     Route: 065
  7. ENALAPRIL HIDROCLOROTIAZIDA [Concomitant]
     Indication: HYPERTENSION
     Dosage: ENALAPRIL 20 MG/ HIDROCLOROTIAZIDA 12.5 MG
     Route: 065
  8. ETORICOXIB AL [Concomitant]
     Indication: CHEST PAIN
     Dosage: 90 MILLIGRAM, QD
     Route: 065
  9. PRAVASTATIN SODIUM. [Suspect]
     Active Substance: PRAVASTATIN SODIUM
     Indication: PRODUCT USED FOR UNKNOWN INDICATION
     Dosage: 40 MILLIGRAM, QD
     Route: 065
     Dates: end: 2019
  10. FENOFIBRATE. [Interacting]
     Active Substance: FENOFIBRATE
     Indication: PRODUCT USED FOR UNKNOWN INDICATION
     Dosage: 160 MILLIGRAM, QD
     Route: 065
     Dates: end: 2019
  11. METAMIZOL [Concomitant]
     Active Substance: METAMIZOLE SODIUM
     Indication: CHEST PAIN
     Dosage: 575 MILLIGRAM, QD
     Route: 065
  12. TRAMADOL + PARACETAMOL [Concomitant]
     Active Substance: ACETAMINOPHEN\TRAMADOL
     Indication: CHEST PAIN
     Dosage: TRAMADOL 75 MG/PARACETAMOL 650 MG
     Route: 065
  13. PARACETAMOL STADA [Concomitant]
     Active Substance: ACETAMINOPHEN
     Indication: CHEST PAIN
     Dosage: 1 GRAM, QD
     Route: 065
  14. LORAZEPAM A [Concomitant]
     Active Substance: LORAZEPAM
     Indication: ANXIETY
     Dosage: 1 MG AS REQUIRED
     Route: 065
  15. FENTANILO [FENTANYL] [Concomitant]
     Indication: CHEST PAIN
     Dosage: 200 MICROGRAM, QD
     Route: 002

REACTIONS (4)
  - Drug interaction [Recovered/Resolved]
  - Hepatic enzyme increased [Recovering/Resolving]
  - Gamma-glutamyltransferase increased [Recovering/Resolving]
  - Anxiety [Unknown]
